FAERS Safety Report 13272987 (Version 1)
Quarter: 2017Q1

REPORT INFORMATION
  Report Type: Spontaneous
  Country: US (occurrence: US)
  Receive Date: 20170227
  Receipt Date: 20170227
  Transmission Date: 20170428
  Serious: Yes (Other)
  Sender: FDA-Public Use
  Company Number: US-ALEXION-A201701658

PATIENT
  Age: 12 Year
  Sex: Female
  Weight: 20.41 kg

DRUGS (1)
  1. SOLIRIS [Suspect]
     Active Substance: ECULIZUMAB
     Indication: HAEMOLYTIC URAEMIC SYNDROME
     Dosage: 900 MG, Q2W
     Route: 042

REACTIONS (8)
  - Oxygen saturation decreased [Not Recovered/Not Resolved]
  - Weight decreased [Unknown]
  - Seizure [Not Recovered/Not Resolved]
  - Abnormal behaviour [Unknown]
  - Muscular weakness [Unknown]
  - Alopecia [Unknown]
  - Pain [Unknown]
  - Protein total decreased [Unknown]

NARRATIVE: CASE EVENT DATE: 20170216
